FAERS Safety Report 10066931 (Version 1)
Quarter: 2014Q2

REPORT INFORMATION
  Report Type: Report from Study
  Country: US (occurrence: US)
  Receive Date: 20140409
  Receipt Date: 20140409
  Transmission Date: 20141212
  Serious: Yes (Death)
  Sender: FDA-Public Use
  Company Number: US-ROCHE-1378788

PATIENT
  Sex: Female

DRUGS (2)
  1. BONIVA [Suspect]
     Indication: SENILE OSTEOPOROSIS
     Route: 048
  2. BONIVA [Suspect]
     Indication: OSTEOPOROSIS

REACTIONS (1)
  - Death [Fatal]
